FAERS Safety Report 19088361 (Version 1)
Quarter: 2021Q2

REPORT INFORMATION
  Report Type: Other
  Country: CN (occurrence: CN)
  Receive Date: 20210402
  Receipt Date: 20210402
  Transmission Date: 20210717
  Serious: Yes (Other)
  Sender: FDA-Public Use
  Company Number: CN-GE HEALTHCARE LIFE SCIENCES-2021CSU001639

PATIENT

DRUGS (2)
  1. VISIPAQUE [Suspect]
     Active Substance: IODIXANOL
     Indication: ACUTE CORONARY SYNDROME
  2. VISIPAQUE [Suspect]
     Active Substance: IODIXANOL
     Indication: DIAGNOSTIC PROCEDURE
     Dosage: 30 ML, SINGLE
     Route: 013
     Dates: start: 20210322, end: 20210322

REACTIONS (9)
  - Asphyxia [Recovering/Resolving]
  - Cough [Recovering/Resolving]
  - Movement disorder [Recovering/Resolving]
  - Restlessness [Recovering/Resolving]
  - Hypertension [Recovering/Resolving]
  - Dysphoria [Recovering/Resolving]
  - Erythema [Recovering/Resolving]
  - Hyperhidrosis [Recovering/Resolving]
  - Asthma [Recovering/Resolving]

NARRATIVE: CASE EVENT DATE: 20210322
